FAERS Safety Report 8575951 (Version 3)
Quarter: 2012Q4

REPORT INFORMATION
  Report Type: 
  Country: US (occurrence: US)
  Receive Date: 20120523
  Receipt Date: 20121015
  Transmission Date: 20130627
  Serious: Yes (Hospitalization, Other)
  Sender: FDA-Public Use
  Company Number: US-PFIZER INC-2012120079

PATIENT
  Age: 57 Year
  Sex: Male

DRUGS (9)
  1. ATENOLOL [Suspect]
     Dosage: 50 mg, daily
     Route: 048
  2. TRAMADOL HCL [Suspect]
     Dosage: 50 mg, daily
     Route: 048
  3. GABAPENTIN [Suspect]
     Dosage: 300 mg HS
     Route: 048
  4. LISINOPRIL [Suspect]
     Dosage: 10 mg, daily
     Route: 048
  5. LISINOPRIL [Suspect]
     Dosage: 20 mg, daily
     Route: 048
     Dates: start: 20120127
  6. SPIRONOLACTONE [Suspect]
     Dosage: 25 mg, daily
     Route: 048
  7. SPIRONOLACTONE [Suspect]
     Dosage: 50 mg, daily
     Route: 048
     Dates: start: 20120216
  8. FLEXERIL [Suspect]
     Dosage: 10 mg, daily
     Route: 048
  9. NEXIUM [Suspect]
     Dosage: 40 mg, daily
     Route: 048

REACTIONS (14)
  - Pancytopenia [Unknown]
  - Hepatitis C [Unknown]
  - Post procedural complication [Unknown]
  - Cirrhosis alcoholic [Unknown]
  - Osteoarthritis [Unknown]
  - Varices oesophageal [Unknown]
  - Obesity [Unknown]
  - Alcohol abuse [Unknown]
  - Sleep apnoea syndrome [Unknown]
  - Nicotine dependence [Unknown]
  - Diverticulum [Unknown]
  - Cholelithiasis [Unknown]
  - Erectile dysfunction [Unknown]
  - Gastrooesophageal reflux disease [Unknown]
